FAERS Safety Report 24751258 (Version 6)
Quarter: 2025Q3

REPORT INFORMATION
  Report Type: Spontaneous
  Country: US (occurrence: US)
  Receive Date: 20241219
  Receipt Date: 20250919
  Transmission Date: 20251020
  Serious: No
  Sender: SUNOVION
  Company Number: US-SMPA-2024SPA005741AA

PATIENT
  Age: 80 Year
  Sex: Male

DRUGS (21)
  1. ORGOVYX [Suspect]
     Active Substance: RELUGOLIX
     Indication: Prostate cancer
     Dosage: 360 MG, SINGLE
     Route: 048
  2. ORGOVYX [Suspect]
     Active Substance: RELUGOLIX
     Dosage: 120 MG, QD
     Route: 048
     Dates: start: 202406
  3. ALFUZOSIN [Concomitant]
     Active Substance: ALFUZOSIN
  4. COENZYME Q10 [Concomitant]
     Active Substance: DIETARY SUPPLEMENT\UBIDECARENONE
  5. ELIQUIS [Concomitant]
     Active Substance: APIXABAN
  6. ENTRESTO [Concomitant]
     Active Substance: SACUBITRIL\VALSARTAN
  7. FOLIC ACID [Concomitant]
     Active Substance: FOLIC ACID
  8. VITAMIN D3 [Concomitant]
     Active Substance: CHOLECALCIFEROL
  9. JARDIANCE [Concomitant]
     Active Substance: EMPAGLIFLOZIN
  10. LASIX [Concomitant]
     Active Substance: FUROSEMIDE
  11. Lipitor plus [Concomitant]
  12. METFORMIN [Concomitant]
     Active Substance: METFORMIN HYDROCHLORIDE
  13. PACERONE [Concomitant]
     Active Substance: AMIODARONE HYDROCHLORIDE
  14. PLAVIX [Concomitant]
     Active Substance: CLOPIDOGREL BISULFATE
  15. MINERALS\VITAMINS [Concomitant]
     Active Substance: MINERALS\VITAMINS
  16. PROSCAR [Concomitant]
     Active Substance: FINASTERIDE
  17. REPATHA [Concomitant]
     Active Substance: EVOLOCUMAB
  18. TOPROL XL [Concomitant]
     Active Substance: METOPROLOL SUCCINATE
  19. ZOLOFT [Concomitant]
     Active Substance: SERTRALINE HYDROCHLORIDE
  20. PROLIA [Concomitant]
     Active Substance: DENOSUMAB
  21. EPIPEN [Concomitant]
     Active Substance: EPINEPHRINE

REACTIONS (9)
  - Vomiting [Unknown]
  - Hiccups [Unknown]
  - Restlessness [Unknown]
  - Lethargy [Unknown]
  - Haematuria [Unknown]
  - Pollakiuria [Unknown]
  - Prostatic disorder [Unknown]
  - Pain in extremity [Unknown]
  - Hot flush [Unknown]
